FAERS Safety Report 9199089 (Version 1)
Quarter: 2013Q1

REPORT INFORMATION
  Report Type: Spontaneous
  Country: GB (occurrence: None)
  Receive Date: 20130326
  Receipt Date: 20130326
  Transmission Date: 20140127
  Serious: Yes (Life-Threatening, Other)
  Sender: FDA-Public Use
  Company Number: 2013-04986

PATIENT
  Age: 85 Year
  Sex: Female

DRUGS (11)
  1. DONEPEZIL HYDROCHLORIDE [Suspect]
     Indication: DEMENTIA ALZHEIMER^S TYPE
     Dosage: NIGHT,
     Route: 048
     Dates: start: 20130222, end: 20130225
  2. CO-CODAMOL (CODEINE PHOSPHATE, PARACETAMOL) [Concomitant]
  3. SENNA? /00142201/ (SENNA ALEXANDRINA) [Concomitant]
  4. SIMVASTATIN (SIMVASTATIN) [Concomitant]
  5. ATENOLOL (ATENOLOL) [Concomitant]
  6. IRBESARTAN AND HIDROCLOROTIAZIDA (HYDROCHLOROTHIAZIDE, IRBESARTAN) [Concomitant]
  7. AMLODIPINE (AMLODIPINE) [Concomitant]
  8. LACTULOSE (LACTULOSE) [Concomitant]
  9. GAVISCON?/00237601/ (ALGINIC ACID, ALUMINIUM HYDROXIDE GEL, DRIED, MAGNESIUM TRISILICATE, SODIUM ALGINATE, SODIUM BICARBONATE) [Concomitant]
  10. XALACOM (LATANOPROST, TIMOLOL MALEATE) [Concomitant]
  11. HYPROMELLOSE (HYPROMELLOSE) [Concomitant]

REACTIONS (6)
  - Convulsion [None]
  - Respiratory rate increased [None]
  - Muscle rigidity [None]
  - Loss of consciousness [None]
  - Tremor [None]
  - Confusional state [None]
